FAERS Safety Report 19943588 (Version 1)
Quarter: 2021Q4

REPORT INFORMATION
  Report Type: Spontaneous
  Country: US (occurrence: US)
  Receive Date: 20211008
  Receipt Date: 20211008
  Transmission Date: 20220303
  Serious: Yes (Disabling)
  Sender: FDA-Public Use
  Company Number: None

PATIENT
  Age: 70 Year
  Sex: Female
  Weight: 67.5 kg

DRUGS (4)
  1. PRISTIQ EXTENDED-RELEASE [Suspect]
     Active Substance: DESVENLAFAXINE SUCCINATE
     Indication: Depression
     Dosage: ?          QUANTITY:1 TABLET(S);
     Route: 048
     Dates: start: 20190814, end: 20210214
  2. DIOVAN [Concomitant]
     Active Substance: VALSARTAN
  3. CALCIUM [Concomitant]
     Active Substance: CALCIUM
  4. VITAMINS [Concomitant]
     Active Substance: VITAMINS

REACTIONS (7)
  - Sleep disorder [None]
  - Insomnia [None]
  - Paraesthesia [None]
  - Anxiety [None]
  - Nausea [None]
  - Depression [None]
  - Influenza like illness [None]

NARRATIVE: CASE EVENT DATE: 20210214
